FAERS Safety Report 4587920-2 (Version None)
Quarter: 2005Q1

REPORT INFORMATION
  Report Type: 
  Country: None (occurrence: None)
  Receive Date: 20050219
  Receipt Date: 20050210
  Transmission Date: 20050727
  Serious: Yes (Hospitalization)
  Sender: FDA-Public Use
  Company Number: PHRM2005FR00776

PATIENT
  Age: 77 Year
  Sex: Female
  Weight: 80 kg

DRUGS (4)
  1. LESCOL [Suspect]
     Indication: HYPERCHOLESTEROLAEMIA
     Dosage: 20 MG, QD
     Route: 048
     Dates: end: 20041215
  2. FOSAMAX [Suspect]
     Indication: OSTEOPOROSIS
     Dosage: 70 MG, QW
     Route: 048
  3. CALTRATE + D [Suspect]
     Indication: OSTEOPOROSIS
     Dosage: 1 DF, QD
     Route: 048
  4. ISOPTIN [Concomitant]
     Indication: PALPITATIONS
     Dosage: 120 MG, BID
     Route: 048

REACTIONS (14)
  - BUNDLE BRANCH BLOCK [None]
  - BUNDLE BRANCH BLOCK RIGHT [None]
  - CARDIOMEGALY [None]
  - DYSPNOEA [None]
  - EOSINOPHILIA [None]
  - EOSINOPHILIC FASCIITIS [None]
  - HAEMATURIA [None]
  - INFLAMMATION [None]
  - INTERSTITIAL LUNG DISEASE [None]
  - LUNG CREPITATION [None]
  - RENAL DISORDER [None]
  - SCLEROEDEMA [None]
  - SYSTEMIC SCLEROSIS [None]
  - VENTRICULAR HYPERTROPHY [None]
